FAERS Safety Report 5009365-3 (Version None)
Quarter: 2006Q2

REPORT INFORMATION
  Report Type: 
  Country: None (occurrence: None)
  Receive Date: 20060522
  Receipt Date: 20060515
  Transmission Date: 20061013
  Serious: Yes (Other)
  Sender: FDA-Public Use
  Company Number: 2005165119

PATIENT
  Age: 28 Year
  Sex: Female

DRUGS (4)
  1. GEODON [Suspect]
     Indication: MANIA
     Dosage: 80 MG (80 MG, 1 IN 1 D),
  2. LITHIUM (LITHIUM) [Suspect]
     Indication: ILL-DEFINED DISORDER
     Dosage: 600 MG (600 MG, 1 IN 1 D),
  3. METHYLPHENIDATE HCL [Suspect]
     Indication: ILL-DEFINED DISORDER
  4. ALL OTHER THERAPEUTIC PRODUCTS (ALL OTHER THERAPEUTIC PRODUCTS) [Suspect]
     Indication: ILL-DEFINED DISORDER

REACTIONS (11)
  - APNOEA [None]
  - BIPOLAR DISORDER [None]
  - CARDIO-RESPIRATORY ARREST [None]
  - COMA [None]
  - DRUG ABUSER [None]
  - EATING DISORDER [None]
  - HYPOKALAEMIA [None]
  - LONG QT SYNDROME [None]
  - PULSE ABSENT [None]
  - SELF-INDUCED VOMITING [None]
  - VENTRICULAR FIBRILLATION [None]
